FAERS Safety Report 7993741-0 (Version None)
Quarter: 2011Q4

REPORT INFORMATION
  Report Type: 
  Country: None (occurrence: None)
  Receive Date: 20111220
  Receipt Date: 20111215
  Transmission Date: 20120403
  Serious: Yes (Death)
  Sender: FDA-Public Use
  Company Number: DE-BIOGENIDEC-2011BI047638

PATIENT
  Age: 61 Year
  Sex: Female
  Weight: 70 kg

DRUGS (1)
  1. AVONEX [Suspect]
     Indication: MULTIPLE SCLEROSIS
     Route: 030
     Dates: start: 20020101, end: 20110101

REACTIONS (1)
  - DEATH [None]
